FAERS Safety Report 7919526-9 (Version None)
Quarter: 2011Q4

REPORT INFORMATION
  Report Type: 
  Country: None (occurrence: None)
  Receive Date: 20111116
  Receipt Date: 20111116
  Transmission Date: 20120403
  Serious: No
  Sender: FDA-Public Use
  Company Number: None

PATIENT
  Sex: Female
  Weight: 79.3 kg

DRUGS (1)
  1. TEFLARO 600MG FOREST LAB [Suspect]
     Indication: STAPHYLOCOCCAL INFECTION
     Dosage: 600 MG Q12H IV
     Route: 042
     Dates: start: 20111105, end: 20111109

REACTIONS (1)
  - BLOOD GLUCOSE FLUCTUATION [None]
